FAERS Safety Report 9663505 (Version 1)
Quarter: 2013Q4

REPORT INFORMATION
  Report Type: Other
  Country: US (occurrence: US)
  Receive Date: 20131101
  Receipt Date: 20131101
  Transmission Date: 20140711
  Serious: No
  Sender: FDA-Public Use
  Company Number: US-ENDO PHARMACEUTICALS INC.-LISI20110019

PATIENT
  Age: 67 Year
  Sex: Male

DRUGS (9)
  1. LISINOPRIL TABLETS 10MG [Suspect]
     Indication: DIABETES MELLITUS
     Route: 048
     Dates: start: 201006
  2. LANTUS [Suspect]
     Route: 058
     Dates: start: 20100630
  3. JANUVIA [Suspect]
  4. CARVEDILOL [Suspect]
  5. LASIX [Suspect]
  6. GLYBURIDE [Suspect]
  7. METFORMIN [Suspect]
  8. NIASPAN [Suspect]
  9. LOW-DOSE ASPIRIN [Concomitant]

REACTIONS (2)
  - Blood glucose increased [Recovered/Resolved]
  - Dizziness [None]
